FAERS Safety Report 4326421-3 (Version None)
Quarter: 2004Q1

REPORT INFORMATION
  Report Type: 
  Country: None (occurrence: None)
  Receive Date: 20040329
  Receipt Date: 20040329
  Transmission Date: 20041129
  Serious: Yes (Other)
  Sender: FDA-Public Use
  Company Number: None

PATIENT
  Sex: Female
  Weight: 68.0396 kg

DRUGS (6)
  1. PAXIL CR [Suspect]
     Indication: DEPRESSION
     Dosage: 25 MG ONCE DAILY ORAL
     Route: 048
     Dates: start: 20021026, end: 20030304
  2. LUVOX [Concomitant]
  3. SSRI [Concomitant]
  4. LAMICTAL [Concomitant]
  5. RISPERDAL [Concomitant]
  6. ZYPREXA [Concomitant]

REACTIONS (9)
  - AGITATION [None]
  - ANXIETY [None]
  - INSOMNIA [None]
  - MANIA [None]
  - PANIC ATTACK [None]
  - RESTLESS LEGS SYNDROME [None]
  - SUICIDAL IDEATION [None]
  - THINKING ABNORMAL [None]
  - WEIGHT INCREASED [None]
